FAERS Safety Report 8877393 (Version 1)
Quarter: 2012Q4

REPORT INFORMATION
  Report Type: 
  Country: FR (occurrence: FR)
  Receive Date: 20121024
  Receipt Date: 20121024
  Transmission Date: 20130627
  Serious: Yes (Hospitalization)
  Sender: FDA-Public Use
  Company Number: FR-SANOFI-AVENTIS-2012SA076544

PATIENT
  Age: 85 Year
  Sex: Female

DRUGS (3)
  1. KETEK [Suspect]
     Indication: COPD EXACERBATION
     Route: 048
     Dates: start: 20120708, end: 20120712
  2. SOLUPRED [Suspect]
     Indication: COPD EXACERBATION
     Route: 048
     Dates: start: 20120708, end: 20120712
  3. AUGMENTIN [Concomitant]
     Indication: COPD EXACERBATION
     Route: 048
     Dates: start: 20120629, end: 20120707

REACTIONS (1)
  - Angle closure glaucoma [Not Recovered/Not Resolved]
